FAERS Safety Report 20428318 (Version 3)
Quarter: 2022Q1

REPORT INFORMATION
  Report Type: Spontaneous
  Country: JP (occurrence: JP)
  Receive Date: 20220204
  Receipt Date: 20220315
  Transmission Date: 20220423
  Serious: Yes (Hospitalization)
  Sender: FDA-Public Use
  Company Number: JP-MSD-M2022-03132

PATIENT
  Age: 74 Year
  Sex: Female

DRUGS (7)
  1. MOLNUPIRAVIR [Suspect]
     Active Substance: MOLNUPIRAVIR
     Indication: COVID-19 treatment
     Dosage: 800 MILLIGRAM, BID
     Route: 048
     Dates: start: 20220119, end: 202201
  2. SYMBICORT [Concomitant]
     Active Substance: BUDESONIDE\FORMOTEROL FUMARATE DIHYDRATE
     Dosage: 2 DOSAGE FORM, BID
     Route: 055
     Dates: start: 20220111
  3. NEXIUM [Concomitant]
     Active Substance: ESOMEPRAZOLE MAGNESIUM
     Dosage: 1 DOSAGE FORM, QD, AFTER BREAKFAST
     Route: 048
     Dates: start: 20220111
  4. HERBALS [Concomitant]
     Active Substance: HERBALS
     Dosage: 2.5 GRAM, BID, BEFORE LUNCH AND DINNER
     Route: 048
     Dates: start: 20220111
  5. AMLODIPINE BESYLATE [Concomitant]
     Active Substance: AMLODIPINE BESYLATE
     Dosage: 5MG, QD, AFTER DINNER
     Route: 048
     Dates: start: 20220111
  6. BILASTINE [Concomitant]
     Active Substance: BILASTINE
     Dosage: 20 MILLIGRAM, QD, BEFORE BREAKFAST
     Route: 048
     Dates: start: 20220111
  7. PATANOL [Concomitant]
     Active Substance: OLOPATADINE HYDROCHLORIDE
     Dosage: 1 GTT DROPS, QID
     Route: 047
     Dates: start: 20220111

REACTIONS (2)
  - Wheezing [Recovered/Resolved]
  - Cough [Recovered/Resolved]

NARRATIVE: CASE EVENT DATE: 20220120
